FAERS Safety Report 12671959 (Version 1)
Quarter: 2016Q3

REPORT INFORMATION
  Report Type: Spontaneous
  Country: US (occurrence: None)
  Receive Date: 20160819
  Receipt Date: 20160819
  Transmission Date: 20161109
  Serious: Yes (Disabling, Other)
  Sender: FDA-Public Use
  Company Number: None

PATIENT
  Age: 38 Year
  Sex: Male
  Weight: 81.65 kg

DRUGS (2)
  1. HYDROCODONE BITARTRATE AND ACETAMINOPHEN [Concomitant]
     Active Substance: ACETAMINOPHEN\HYDROCODONE BITARTRATE
  2. LEVOFLOXACIN, 500 MG [Suspect]
     Active Substance: LEVOFLOXACIN
     Indication: EPIDIDYMITIS
     Route: 048
     Dates: start: 20160810, end: 20160813

REACTIONS (3)
  - Mobility decreased [None]
  - Musculoskeletal pain [None]
  - Tendonitis [None]

NARRATIVE: CASE EVENT DATE: 20160810
